FAERS Safety Report 21201377 (Version 2)
Quarter: 2022Q3

REPORT INFORMATION
  Report Type: Spontaneous
  Country: US (occurrence: US)
  Receive Date: 20220811
  Receipt Date: 20220816
  Transmission Date: 20221027
  Serious: Yes (Death, Other)
  Sender: FDA-Public Use
  Company Number: 2022USL00384

PATIENT
  Age: 88 Year
  Sex: Male

DRUGS (1)
  1. CHLORPROMAZINE HYDROCHLORIDE [Suspect]
     Active Substance: CHLORPROMAZINE HYDROCHLORIDE
     Indication: Chemical poisoning
     Dosage: TWICE DAILY AT 25 MG 3:30 AND 50 MILLIGRAM, AT 6:30 PM
     Route: 048
     Dates: start: 202205

REACTIONS (8)
  - Death [Fatal]
  - Hallucination [Unknown]
  - Dementia [Unknown]
  - Oedema peripheral [Unknown]
  - Confusional state [Recovering/Resolving]
  - Ataxia [Recovering/Resolving]
  - Rash [Unknown]
  - Adverse reaction [Unknown]

NARRATIVE: CASE EVENT DATE: 20220530
